FAERS Safety Report 4747309-X (Version None)
Quarter: 2005Q3

REPORT INFORMATION
  Report Type: 
  Country: None (occurrence: None)
  Receive Date: 20050816
  Receipt Date: 20050803
  Transmission Date: 20060218
  Serious: Yes (Other)
  Sender: FDA-Public Use
  Company Number: 2005111205

PATIENT
  Age: 71 Year
  Sex: Male
  Weight: 81.6475 kg

DRUGS (2)
  1. VIAGRA [Suspect]
     Indication: ERECTILE DYSFUNCTION
     Dosage: 50 MG (50 MG, PRN INTERVAL: PRN), ORAL
     Route: 048
  2. CHEMOTHERAPY NOS (CHEMOTHERAPY NOS) [Suspect]
     Indication: ILL-DEFINED DISORDER
     Dates: start: 20050101

REACTIONS (3)
  - BLOOD TEST ABNORMAL [None]
  - DYSURIA [None]
  - LUNG NEOPLASM MALIGNANT [None]
